FAERS Safety Report 6554532-0 (Version None)
Quarter: 2010Q1

REPORT INFORMATION
  Report Type: 
  Country: None (occurrence: None)
  Receive Date: 20100127
  Receipt Date: 20100118
  Transmission Date: 20100710
  Serious: Yes (Other)
  Sender: FDA-Public Use
  Company Number: PHHY2010BR03181

PATIENT
  Sex: Male

DRUGS (6)
  1. RASILEZ [Suspect]
     Indication: HYPERTENSION
     Dosage: 150 MG
     Route: 065
  2. RASILEZ [Suspect]
     Dosage: 300 MG
     Route: 065
  3. VASOGARD [Concomitant]
     Indication: CARDIAC DISORDER
     Dosage: 1 TABLET PER DAY
     Route: 048
     Dates: start: 20010101
  4. ZYLORIC [Concomitant]
     Indication: GOUT
     Dosage: 1 TABLET PER DAY
     Route: 048
  5. ACARBOSE [Concomitant]
     Indication: DIABETES MELLITUS
     Dosage: 1 TABET PER DAY
     Route: 048
     Dates: start: 20010101
  6. AAS [Concomitant]
     Indication: ANTICOAGULANT THERAPY
     Dosage: 100 MG, 1 TABLET A DAY
     Route: 048
     Dates: start: 20010101

REACTIONS (4)
  - ARTERIAL OCCLUSIVE DISEASE [None]
  - CATHETER PLACEMENT [None]
  - CHEST PAIN [None]
  - DYSPNOEA [None]
